FAERS Safety Report 12390427 (Version 3)
Quarter: 2016Q4

REPORT INFORMATION
  Report Type: Report from Study
  Country: BR (occurrence: BR)
  Receive Date: 20160520
  Receipt Date: 20161222
  Transmission Date: 20170207
  Serious: Yes (Other)
  Sender: FDA-Public Use
  Company Number: PHHY2016BR013944

PATIENT
  Sex: Male
  Weight: 88 kg

DRUGS (5)
  1. SOLIRIS [Concomitant]
     Active Substance: ECULIZUMAB
     Indication: PRODUCT USED FOR UNKNOWN INDICATION
     Dosage: UNK
     Route: 065
  2. EXJADE [Suspect]
     Active Substance: DEFERASIROX
     Indication: BONE MARROW FAILURE
  3. SULFAMETOXAZOL [Concomitant]
     Active Substance: SULFAMETHOXAZOLE
     Indication: BONE MARROW FAILURE
     Dosage: 3 DF, QD
     Route: 048
  4. EXJADE [Suspect]
     Active Substance: DEFERASIROX
     Indication: SICKLE CELL ANAEMIA
     Dosage: 2000 MG, QD (4 DF)
     Route: 048
     Dates: start: 20160120
  5. TACROLIM [Concomitant]
     Indication: BONE MARROW FAILURE
     Dosage: 3 DF, QD
     Route: 048

REACTIONS (4)
  - Chromaturia [Recovering/Resolving]
  - Product use issue [Unknown]
  - Poisoning [Unknown]
  - Blood iron increased [Recovering/Resolving]
